FAERS Safety Report 6988165-9 (Version None)
Quarter: 2010Q3

REPORT INFORMATION
  Report Type: 
  Country: None (occurrence: None)
  Receive Date: 20100916
  Receipt Date: 20100909
  Transmission Date: 20110219
  Serious: Yes (Other)
  Sender: FDA-Public Use
  Company Number: GB-ROCHE-726491

PATIENT
  Sex: Female

DRUGS (2)
  1. PEGINTERFERON ALFA-2A [Suspect]
     Indication: PRODUCT USED FOR UNKNOWN INDICATION
     Route: 065
  2. CONTRACEPTIVE IMPLANT [Concomitant]
     Indication: CONTRACEPTION
     Route: 050
     Dates: start: 20050101

REACTIONS (1)
  - VAGINAL HAEMORRHAGE [None]
